FAERS Safety Report 9124218 (Version 3)
Quarter: 2013Q1

REPORT INFORMATION
  Report Type: Spontaneous
  Country: FI (occurrence: FI)
  Receive Date: 20130227
  Receipt Date: 20130312
  Transmission Date: 20140127
  Serious: Yes (Life-Threatening, Hospitalization, Other)
  Sender: FDA-Public Use
  Company Number: FI-ROCHE-1194763

PATIENT
  Age: 83 Year
  Sex: Male

DRUGS (6)
  1. AVASTIN [Suspect]
     Indication: AGE-RELATED MACULAR DEGENERATION
     Route: 050
     Dates: start: 20121130, end: 20121130
  2. AVASTIN [Suspect]
     Indication: OFF LABEL USE
     Route: 050
     Dates: start: 20130109, end: 20130109
  3. AZOPT [Concomitant]
     Indication: GLAUCOMA
     Route: 047
  4. GANFORT [Concomitant]
     Indication: GLAUCOMA
     Route: 065
  5. XGEVA [Concomitant]
     Indication: PROSTATE CANCER METASTATIC
     Route: 030
  6. CALCICHEW D3 FORTE [Concomitant]
     Indication: PROPHYLAXIS
     Route: 048

REACTIONS (4)
  - Cerebral infarction [Recovering/Resolving]
  - Myocardial infarction [Recovering/Resolving]
  - Cardiac failure [Recovering/Resolving]
  - Coronary artery disease [Unknown]
